FAERS Safety Report 9719339 (Version 2)
Quarter: 2013Q4

REPORT INFORMATION
  Report Type: Spontaneous
  Country: US (occurrence: US)
  Receive Date: 20131127
  Receipt Date: 20131203
  Transmission Date: 20140711
  Serious: No
  Sender: FDA-Public Use
  Company Number: US-009507513-1311USA010663

PATIENT
  Sex: Male

DRUGS (5)
  1. PEGINTRON [Suspect]
     Indication: HEPATITIS C
     Dosage: 150 MICROGRAM, ONCE WEEKLY
     Route: 058
     Dates: start: 20131016
  2. RIBASPHERE [Suspect]
  3. INCIVEK [Suspect]
  4. BUPROPION HYDROCHLORIDE [Concomitant]
  5. GABAPENTIN [Concomitant]

REACTIONS (2)
  - Abdominal discomfort [Not Recovered/Not Resolved]
  - Influenza like illness [Not Recovered/Not Resolved]
